FAERS Safety Report 14029294 (Version 1)
Quarter: 2017Q3

REPORT INFORMATION
  Report Type: Spontaneous
  Country: US (occurrence: US)
  Receive Date: 20170930
  Receipt Date: 20170930
  Transmission Date: 20171128
  Serious: No
  Sender: FDA-Public Use
  Company Number: US-SA-2017SA088075

PATIENT
  Sex: Female

DRUGS (18)
  1. AUBAGIO [Suspect]
     Active Substance: TERIFLUNOMIDE
     Indication: MULTIPLE SCLEROSIS
     Route: 048
  2. BENZONATATE. [Concomitant]
     Active Substance: BENZONATATE
  3. LAMOTRIGINE. [Concomitant]
     Active Substance: LAMOTRIGINE
  4. TRAMADOL HYDROCHLORIDE. [Concomitant]
     Active Substance: TRAMADOL HYDROCHLORIDE
  5. AMOXICILLIN/CLAVULANATE POTASSIUM [Concomitant]
     Dosage: DOSE: 875-125
  6. FUROSEMIDE. [Concomitant]
     Active Substance: FUROSEMIDE
  7. HYDROMORPHONE [Concomitant]
     Active Substance: HYDROMORPHONE
  8. OXYBUTYNIN [Concomitant]
     Active Substance: OXYBUTYNIN
     Dosage: ER
  9. MONTELUKAST [Concomitant]
     Active Substance: MONTELUKAST SODIUM
  10. MYCOPHENOLATE SODIUM [Concomitant]
     Active Substance: MYCOPHENOLATE SODIUM
  11. AZITHROMYCIN ANHYDROUS. [Concomitant]
     Active Substance: AZITHROMYCIN ANHYDROUS
  12. PREDNISONE. [Concomitant]
     Active Substance: PREDNISONE
  13. ALBUTEROL. [Concomitant]
     Active Substance: ALBUTEROL
     Dosage: DOSE: 2 MG/5 ML
  14. LEVOFLOXACIN. [Concomitant]
     Active Substance: LEVOFLOXACIN
  15. SIMVASTATIN. [Concomitant]
     Active Substance: SIMVASTATIN
  16. SUMATRIPTAN. [Concomitant]
     Active Substance: SUMATRIPTAN
  17. PANTOPRAZOLE [Concomitant]
     Active Substance: PANTOPRAZOLE
  18. OXYBUTYNIN [Concomitant]
     Active Substance: OXYBUTYNIN
     Dosage: ER

REACTIONS (3)
  - Diarrhoea [Unknown]
  - Nausea [Unknown]
  - Burning sensation [Unknown]
